FAERS Safety Report 13906805 (Version 3)
Quarter: 2017Q4

REPORT INFORMATION
  Report Type: Report from Study
  Country: CN (occurrence: CN)
  Receive Date: 20170825
  Receipt Date: 20171020
  Transmission Date: 20180320
  Serious: Yes (Death, Hospitalization, Other)
  Sender: FDA-Public Use
  Company Number: CN-BAYER-2017-158498

PATIENT
  Age: 41 Year
  Sex: Female

DRUGS (1)
  1. STIVARGA [Suspect]
     Active Substance: REGORAFENIB
     Indication: COLORECTAL CANCER
     Dosage: 80 MG, QD
     Route: 048
     Dates: start: 20170811, end: 2017

REACTIONS (11)
  - Muscle rigidity [Unknown]
  - Hypoaesthesia [Unknown]
  - Urticaria [Unknown]
  - Pulmonary embolism [Unknown]
  - Joint swelling [None]
  - Death [Fatal]
  - Blood pressure increased [Unknown]
  - Fatigue [Unknown]
  - Tumour marker increased [Unknown]
  - Thrombosis [Unknown]
  - Carcinoembryonic antigen decreased [Unknown]

NARRATIVE: CASE EVENT DATE: 201708
